FAERS Safety Report 9236071 (Version 1)
Quarter: 2013Q2

REPORT INFORMATION
  Report Type: Spontaneous
  Country: US (occurrence: None)
  Receive Date: 20130416
  Receipt Date: 20130416
  Transmission Date: 20140414
  Serious: Yes (Hospitalization)
  Sender: FDA-Public Use
  Company Number: None

PATIENT
  Age: 71 Year
  Sex: Male
  Weight: 77 kg

DRUGS (18)
  1. DESMOPRESSIN [Suspect]
     Indication: RENAL FAILURE CHRONIC
     Dosage: DESINOPRESSON 24.08 MCG IN 50ML NECL 0.9% GIVEN ONCE INTRAVENOUS BOLUS
     Dates: start: 20130303
  2. DESMOPRESSIN [Suspect]
     Indication: HAEMORRHAGE
     Dosage: DESINOPRESSON 24.08 MCG IN 50ML NECL 0.9% GIVEN ONCE INTRAVENOUS BOLUS
     Dates: start: 20130303
  3. ALLOPURINOL [Concomitant]
  4. AMLODIPINE [Concomitant]
  5. ASA [Concomitant]
  6. VITAMIN B COMPLEX [Concomitant]
  7. CILOSTAZOL [Concomitant]
  8. DOCUSATE [Concomitant]
  9. NEXIUM [Concomitant]
  10. LANTUS [Concomitant]
  11. HUMALOG SLIDING SCALE [Concomitant]
  12. REGLAN [Concomitant]
  13. WARFARIN [Concomitant]
  14. TYLENOL [Concomitant]
  15. DOCOLAX [Concomitant]
  16. TUMS [Concomitant]
  17. NORCO [Concomitant]
  18. NITROSTAT [Concomitant]

REACTIONS (1)
  - Angioedema [None]
